FAERS Safety Report 6061897-5 (Version None)
Quarter: 2009Q1

REPORT INFORMATION
  Report Type: 
  Country: None (occurrence: None)
  Receive Date: 20090202
  Receipt Date: 20090126
  Transmission Date: 20090719
  Serious: Yes (Other)
  Sender: FDA-Public Use
  Company Number: PHBS2009US00635

PATIENT
  Age: 64 Year
  Sex: Female

DRUGS (5)
  1. IMIPRAMINE [Suspect]
     Indication: DEPRESSION
  2. CELECOXIB [Concomitant]
  3. PANTOPRAZOLE [Concomitant]
  4. NEFAZODONE HCL [Concomitant]
  5. HYDROCHLOROTHIAZIDE W/IRBESARTAN [Concomitant]

REACTIONS (3)
  - ARGYRIA [None]
  - SKIN DISCOLOURATION [None]
  - SKIN HYPERPIGMENTATION [None]
